FAERS Safety Report 7991199-9 (Version None)
Quarter: 2011Q4

REPORT INFORMATION
  Report Type: 
  Country: None (occurrence: None)
  Receive Date: 20111219
  Receipt Date: 20111208
  Transmission Date: 20120403
  Serious: Yes (Hospitalization)
  Sender: FDA-Public Use
  Company Number: US-GLAXOSMITHKLINE-A0881153A

PATIENT
  Sex: Female

DRUGS (1)
  1. AVANDIA [Suspect]
     Indication: TYPE 2 DIABETES MELLITUS
     Dosage: 4MG PER DAY
     Route: 048

REACTIONS (8)
  - BONE PAIN [None]
  - HEADACHE [None]
  - HYPOTENSION [None]
  - BREAST NEOPLASM [None]
  - HYPOAESTHESIA [None]
  - CHEST PAIN [None]
  - VIITH NERVE PARALYSIS [None]
  - PALPITATIONS [None]
